FAERS Safety Report 14911644 (Version 2)
Quarter: 2018Q2

REPORT INFORMATION
  Report Type: Report from Study
  Country: US (occurrence: US)
  Receive Date: 20180518
  Receipt Date: 20180615
  Transmission Date: 20180711
  Serious: Yes (Death, Hospitalization)
  Sender: FDA-Public Use
  Company Number: PHEH2018US018733

PATIENT
  Sex: Female
  Weight: 73 kg

DRUGS (15)
  1. ZARXIO [Suspect]
     Active Substance: FILGRASTIM-SNDZ
     Dosage: UNK
     Route: 065
     Dates: start: 20171028
  2. ZARXIO [Suspect]
     Active Substance: FILGRASTIM-SNDZ
     Indication: NEUTROPENIA
     Dosage: UNK
     Route: 065
     Dates: start: 20170929
  3. VITAMIN D3 [Concomitant]
     Active Substance: CHOLECALCIFEROL
     Indication: SUPPLEMENTATION THERAPY
     Dosage: 2000 U, UNK
     Route: 048
     Dates: start: 20161017
  4. ZARXIO [Suspect]
     Active Substance: FILGRASTIM-SNDZ
     Indication: BREAST NEOPLASM
     Dosage: UNK
     Route: 065
     Dates: start: 20170927
  5. ZARXIO [Suspect]
     Active Substance: FILGRASTIM-SNDZ
     Dosage: UNK
     Route: 065
     Dates: start: 20171027
  6. ZARXIO [Suspect]
     Active Substance: FILGRASTIM-SNDZ
     Dosage: UNK
     Route: 065
     Dates: start: 20171118
  7. LETROZOLE. [Concomitant]
     Active Substance: LETROZOLE
     Indication: BREAST CANCER
     Dosage: 2.5 MG, UNK
     Route: 048
     Dates: start: 20180110
  8. GEMZAR [Concomitant]
     Active Substance: GEMCITABINE HYDROCHLORIDE
     Indication: PRODUCT USED FOR UNKNOWN INDICATION
     Dosage: 1000 MG/M2, (2 WEEKS ON AND 1 WEEK OFF)
     Route: 065
  9. ZARXIO [Suspect]
     Active Substance: FILGRASTIM-SNDZ
     Dosage: UNK
     Route: 065
     Dates: start: 20171117
  10. CALCIUM [Concomitant]
     Active Substance: CALCIUM
     Indication: SUPPLEMENTATION THERAPY
     Dosage: 600 MG, UNK
     Route: 048
     Dates: start: 20161017
  11. ZARXIO [Suspect]
     Active Substance: FILGRASTIM-SNDZ
     Indication: AGRANULOCYTOSIS
     Dosage: UNK
     Route: 065
     Dates: start: 20170928
  12. ZARXIO [Suspect]
     Active Substance: FILGRASTIM-SNDZ
     Dosage: UNK
     Route: 065
     Dates: start: 20171116
  13. ESCITALOPRAM [Concomitant]
     Active Substance: ESCITALOPRAM OXALATE
     Indication: PRODUCT USED FOR UNKNOWN INDICATION
     Dosage: 20 MG, UNK
     Route: 048
     Dates: start: 20161026
  14. DILAUDID [Concomitant]
     Active Substance: HYDROMORPHONE HYDROCHLORIDE
     Indication: PAIN
     Dosage: 2 MG, UNK
     Route: 048
     Dates: start: 20171011
  15. ZARXIO [Suspect]
     Active Substance: FILGRASTIM-SNDZ
     Dosage: UNK
     Route: 065
     Dates: start: 20171026

REACTIONS (4)
  - Neutropenia [Fatal]
  - Asthenia [Unknown]
  - Thrombocytopenia [Unknown]
  - Anaemia [Unknown]
